FAERS Safety Report 10759166 (Version 7)
Quarter: 2015Q2

REPORT INFORMATION
  Report Type: Spontaneous
  Country: US (occurrence: US)
  Receive Date: 20150203
  Receipt Date: 20150514
  Transmission Date: 20150821
  Serious: Yes (Hospitalization, Other)
  Sender: FDA-Public Use
  Company Number: US-UNITED THERAPEUTICS-UNT-2015-000562

PATIENT
  Age: 60 Year
  Sex: Female
  Weight: 61.77 kg

DRUGS (4)
  1. LETAIRIS [Suspect]
     Active Substance: AMBRISENTAN
     Indication: PULMONARY HYPERTENSION
     Dosage: 5 MG, QD
     Route: 048
     Dates: start: 20140917
  2. REMODULIN [Suspect]
     Active Substance: TREPROSTINIL
     Indication: PULMONARY HYPERTENSION
     Dosage: 0.0155 ?G/KG, CONTINUING
     Route: 041
     Dates: start: 20141124
  3. REMODULIN [Suspect]
     Active Substance: TREPROSTINIL
     Indication: COR PULMONALE CHRONIC
     Dosage: 0.014 ?G/KG, CONTINUING
     Route: 041
  4. REVATIO [Concomitant]
     Active Substance: SILDENAFIL CITRATE
     Indication: PRODUCT USED FOR UNKNOWN INDICATION

REACTIONS (11)
  - Injection site oedema [Unknown]
  - Pulmonary hypertension [Unknown]
  - Injection site reaction [Unknown]
  - Fluid retention [Recovered/Resolved]
  - Injection site pain [Unknown]
  - Allergy to chemicals [Unknown]
  - Skin disorder [Unknown]
  - Injection site irritation [Unknown]
  - Injection site discharge [Unknown]
  - Injection site erythema [Unknown]
  - Weight increased [Unknown]

NARRATIVE: CASE EVENT DATE: 20141223
